FAERS Safety Report 19073806 (Version 1)
Quarter: 2021Q1

REPORT INFORMATION
  Report Type: Spontaneous
  Country: NL (occurrence: NL)
  Receive Date: 20210330
  Receipt Date: 20210330
  Transmission Date: 20210420
  Serious: Yes (Other)
  Sender: FDA-Public Use
  Company Number: NL-SAMSUNG BIOEPIS-SB-2021-05888

PATIENT
  Age: 26 Year
  Sex: Male
  Weight: 91 kg

DRUGS (2)
  1. ADALIMUMAB [Suspect]
     Active Substance: ADALIMUMAB
     Indication: COLITIS ULCERATIVE
     Dosage: STRENGTH: 100 MG/ML
     Route: 065
     Dates: start: 20210126
  2. PREDNISON [Concomitant]
     Active Substance: PREDNISONE
     Indication: PRODUCT USED FOR UNKNOWN INDICATION
     Route: 065

REACTIONS (1)
  - Acute febrile neutrophilic dermatosis [Recovered/Resolved]

NARRATIVE: CASE EVENT DATE: 20210201
